FAERS Safety Report 8331251 (Version 2)
Quarter: 2013Q4

REPORT INFORMATION
  Report Type: Spontaneous
  Country: US (occurrence: US)
  Receive Date: 20120111
  Receipt Date: 20131016
  Transmission Date: 20140711
  Serious: Yes (Other)
  Sender: FDA-Public Use
  Company Number: US-ROCHE-794424

PATIENT
  Sex: Female
  Weight: 74 kg

DRUGS (1)
  1. ACCUTANE [Suspect]
     Indication: ACNE
     Dosage: PLAINTIFF INGESTED FROM APPROXIMATELY LATE 1980S THRU EARLY 1990S
     Route: 065

REACTIONS (5)
  - Inflammatory bowel disease [Unknown]
  - Hypertension [Unknown]
  - Anaemia [Unknown]
  - Irritable bowel syndrome [Unknown]
  - Blood cholesterol increased [Unknown]
